FAERS Safety Report 16338678 (Version 1)
Quarter: 2019Q2

REPORT INFORMATION
  Report Type: Spontaneous
  Country: BR (occurrence: BR)
  Receive Date: 20190521
  Receipt Date: 20190521
  Transmission Date: 20190711
  Serious: Yes (Other)
  Sender: FDA-Public Use
  Company Number: BR-JNJFOC-20190513392

PATIENT
  Sex: Male
  Weight: 39 kg

DRUGS (3)
  1. KALYAMON KIDS [Suspect]
     Active Substance: MINERALS\VITAMINS
     Indication: VITAMIN SUPPLEMENTATION
     Route: 048
  2. RISPERIDONE. [Suspect]
     Active Substance: RISPERIDONE
     Indication: PRODUCT USED FOR UNKNOWN INDICATION
     Route: 065
  3. NEULEPTIL [Concomitant]
     Active Substance: PERICIAZINE
     Route: 065

REACTIONS (3)
  - Autism spectrum disorder [Not Recovered/Not Resolved]
  - Decreased appetite [Not Recovered/Not Resolved]
  - Trismus [Not Recovered/Not Resolved]
